APPROVED DRUG PRODUCT: INLURIYO
Active Ingredient: IMLUNESTRANT TOSYLATE
Strength: EQ 200MG BASE
Dosage Form/Route: TABLET;ORAL
Application: N218881 | Product #001
Applicant: ELI LILLY AND CO
Approved: Sep 25, 2025 | RLD: Yes | RS: Yes | Type: RX

PATENTS:
Patent 11117902 | Expires: Jul 11, 2039
Patent 10654866 | Expires: Jul 11, 2039

EXCLUSIVITY:
Code: NCE | Date: Sep 25, 2030